FAERS Safety Report 7441898-2 (Version None)
Quarter: 2011Q2

REPORT INFORMATION
  Report Type: 
  Country: None (occurrence: None)
  Receive Date: 20110428
  Receipt Date: 20101215
  Transmission Date: 20111010
  Serious: No
  Sender: FDA-Public Use
  Company Number: US-ASTRAZENECA-2010SE59479

PATIENT
  Age: 60 Year
  Sex: Female

DRUGS (2)
  1. ZOMIG-ZMT [Suspect]
     Indication: MIGRAINE
     Route: 048
     Dates: start: 20071101, end: 20091201
  2. ZOMIG-ZMT [Suspect]
     Route: 048
     Dates: start: 20100301

REACTIONS (6)
  - BLOOD PRESSURE DECREASED [None]
  - PRODUCT TASTE ABNORMAL [None]
  - DRUG INEFFECTIVE [None]
  - INCORRECT DOSE ADMINISTERED [None]
  - DIZZINESS [None]
  - THERAPEUTIC RESPONSE UNEXPECTED [None]
